FAERS Safety Report 10025652 (Version 1)
Quarter: 2014Q1

REPORT INFORMATION
  Report Type: Spontaneous
  Country: US (occurrence: US)
  Receive Date: 20140320
  Receipt Date: 20140320
  Transmission Date: 20141002
  Serious: No
  Sender: FDA-Public Use
  Company Number: US-009507513-1403USA001561

PATIENT
  Age: 44 Year
  Sex: Female

DRUGS (3)
  1. CORICIDIN HBP COLD AND FLU [Suspect]
     Indication: HYPERSENSITIVITY
     Dosage: UNK, UNKNOWN
     Route: 048
  2. CORICIDIN HBP COLD AND FLU [Suspect]
     Indication: COUGH
  3. CORICIDIN HBP COLD AND FLU [Suspect]
     Indication: SINUS CONGESTION

REACTIONS (2)
  - Drug ineffective for unapproved indication [Unknown]
  - Off label use [Unknown]
